FAERS Safety Report 16273062 (Version 14)
Quarter: 2021Q3

REPORT INFORMATION
  Report Type: Report from Study
  Country: JP (occurrence: JP)
  Receive Date: 20190506
  Receipt Date: 20210729
  Transmission Date: 20211014
  Serious: Yes (Death, Hospitalization, Other)
  Sender: FDA-Public Use
  Company Number: JP-ASTELLAS-2019JP008022

PATIENT
  Age: 85 Year
  Sex: Male
  Weight: 55 kg

DRUGS (53)
  1. CLARITHROMYCIN. [Concomitant]
     Active Substance: CLARITHROMYCIN
     Indication: CHRONIC OBSTRUCTIVE PULMONARY DISEASE
     Route: 048
     Dates: start: 2015
  2. RABEPRAZOLE NA [Concomitant]
     Active Substance: RABEPRAZOLE SODIUM
     Indication: PROPHYLAXIS
     Route: 048
     Dates: start: 20160928
  3. L?CARBOCISTEINE [Concomitant]
     Active Substance: CARBOCYSTEINE
     Indication: CHRONIC OBSTRUCTIVE PULMONARY DISEASE
     Route: 048
     Dates: start: 20180130
  4. CALONAL [Concomitant]
     Active Substance: ACETAMINOPHEN
     Indication: BACK PAIN
     Route: 048
     Dates: start: 20201115
  5. JUZENTAIHOTO [Concomitant]
     Active Substance: HERBALS
     Indication: DECREASED APPETITE
     Route: 048
     Dates: start: 20210420
  6. QUETIAPINE. [Concomitant]
     Active Substance: QUETIAPINE
     Route: 048
     Dates: start: 20210702
  7. AZUNOL [Concomitant]
     Indication: DECREASED APPETITE
     Dosage: ADEQUATE DOSE, AS NEEDED
     Route: 061
     Dates: start: 20210707
  8. LEVOFLOXACIN HEMIHYDRATE [Concomitant]
     Active Substance: LEVOFLOXACIN
     Indication: PRODUCT USED FOR UNKNOWN INDICATION
     Route: 048
     Dates: start: 20210709, end: 20210713
  9. SYMBICORT [Concomitant]
     Active Substance: BUDESONIDE\FORMOTEROL FUMARATE DIHYDRATE
     Dosage: ONE INHALATION, ONCE DAILY
     Route: 065
  10. RANMARK [Concomitant]
     Active Substance: DENOSUMAB
     Indication: PROPHYLAXIS
     Route: 058
     Dates: start: 20170217
  11. SODIUM RABEPRAZOLE [Concomitant]
     Active Substance: RABEPRAZOLE SODIUM
     Indication: PROPHYLAXIS
     Route: 048
     Dates: start: 20210630
  12. DEXTROMETHORPHAN HYDROBROMIDE. [Concomitant]
     Active Substance: DEXTROMETHORPHAN HYDROBROMIDE
     Indication: CHRONIC OBSTRUCTIVE PULMONARY DISEASE
     Route: 048
     Dates: start: 2019
  13. MEROPENEM. [Concomitant]
     Active Substance: MEROPENEM
     Indication: PRODUCT USED FOR UNKNOWN INDICATION
     Dosage: UNK UNK, UNKNOWN FREQ.
     Route: 065
     Dates: start: 20210625, end: 20210628
  14. CEFAZOLIN NA [Concomitant]
     Active Substance: CEFAZOLIN SODIUM
     Indication: PRODUCT USED FOR UNKNOWN INDICATION
     Dosage: UNK UNK, UNKNOWN FREQ.
     Route: 065
     Dates: start: 20210629, end: 20210708
  15. GEBEN [Concomitant]
     Active Substance: SILVER SULFADIAZINE
     Indication: DECREASED APPETITE
     Dosage: ADEQUATE DOSE, AS NEEDED
     Route: 061
     Dates: start: 20210708
  16. FUROSEMIDE. [Concomitant]
     Active Substance: FUROSEMIDE
     Route: 048
     Dates: start: 20210709
  17. SPIRIVA [Concomitant]
     Active Substance: TIOTROPIUM BROMIDE MONOHYDRATE
     Indication: CHRONIC OBSTRUCTIVE PULMONARY DISEASE
     Route: 050
     Dates: start: 2007
  18. DEPAS [Concomitant]
     Indication: INSOMNIA
     Dosage: 0.5 MG, AS NEEDED
     Route: 048
     Dates: start: 2007
  19. ALOSENN [Concomitant]
     Dosage: 0.5 G, ONCE DAILY
     Route: 048
  20. SYMBICORT [Concomitant]
     Active Substance: BUDESONIDE\FORMOTEROL FUMARATE DIHYDRATE
     Indication: CHRONIC OBSTRUCTIVE PULMONARY DISEASE
     Dosage: ONE INHALATION, ONCE DAILY
     Route: 065
     Dates: start: 2007, end: 20180130
  21. LOXOPROFEN NA [Concomitant]
     Active Substance: LOXOPROFEN SODIUM
     Indication: BACK PAIN
     Dosage: UNK UNK, AS NEEDED
     Route: 050
     Dates: start: 20170414
  22. FEXOFENADINE HYDROCHLORIDE. [Concomitant]
     Active Substance: FEXOFENADINE HYDROCHLORIDE
     Indication: SKIN DISORDER PROPHYLAXIS
     Route: 048
     Dates: start: 20180707
  23. DAIKENCHUTO [Concomitant]
     Active Substance: HERBALS
     Route: 048
     Dates: start: 20210630
  24. SOLDEM 3AG [Concomitant]
     Indication: DECREASED APPETITE
     Route: 042
     Dates: start: 20210628
  25. QUETIAPINE. [Concomitant]
     Active Substance: QUETIAPINE
     Indication: INSOMNIA
     Route: 048
     Dates: start: 20210629
  26. SULTANOL [Concomitant]
     Active Substance: ALBUTEROL SULFATE
     Indication: CHRONIC OBSTRUCTIVE PULMONARY DISEASE
     Route: 065
     Dates: start: 2007, end: 20180130
  27. CLARITHROMYCIN. [Concomitant]
     Active Substance: CLARITHROMYCIN
     Route: 048
     Dates: start: 2019
  28. WHITE PETROLATUM [Concomitant]
     Active Substance: PETROLATUM
     Indication: BLADDER CATHETERISATION
     Dosage: UNK UNK, UNKNOWN FREQ.
     Route: 065
     Dates: start: 20170317, end: 20170414
  29. BESOFTEN [Concomitant]
     Active Substance: PENTOSAN POLYSULFATE SODIUM
     Indication: PRURITUS
     Dosage: ADEQUATE DOSE, AS NEEDED
     Route: 061
     Dates: start: 20200710
  30. DAIKENCHUTO [Concomitant]
     Active Substance: HERBALS
     Indication: CONSTIPATION
     Route: 048
     Dates: start: 20210616
  31. ENZALUTAMIDE [Suspect]
     Active Substance: ENZALUTAMIDE
     Indication: PROSTATE CANCER
     Route: 065
     Dates: start: 20200515, end: 20210621
  32. EVAMYL [Concomitant]
     Active Substance: LORMETAZEPAM
     Indication: INSOMNIA
     Route: 048
     Dates: start: 2007
  33. MAGMITT [Concomitant]
     Active Substance: MAGNESIUM OXIDE
     Route: 048
     Dates: start: 20210630
  34. L?CARBOCISTEINE [Concomitant]
     Active Substance: CARBOCYSTEINE
     Route: 065
     Dates: start: 20210630
  35. SENNOSIDE [Concomitant]
     Active Substance: SENNOSIDES
     Indication: CONSTIPATION
     Route: 048
     Dates: start: 20201127
  36. SENNOSIDE [Concomitant]
     Active Substance: SENNOSIDES
     Route: 048
     Dates: start: 20210630
  37. JUZENTAIHOTO [Concomitant]
     Active Substance: HERBALS
     Route: 048
     Dates: start: 20210630
  38. CEFTRIAXONE SODIUM HYDRATE [Concomitant]
     Active Substance: CEFTRIAXONE SODIUM
     Indication: PRODUCT USED FOR UNKNOWN INDICATION
     Dosage: UNK UNK, UNKNOWN FREQ.
     Route: 042
     Dates: start: 20210624, end: 20210625
  39. SOLULACT [Concomitant]
     Active Substance: CALCIUM CHLORIDE\POTASSIUM CHLORIDE\SODIUM CHLORIDE\SODIUM LACTATE
     Indication: DECREASED APPETITE
     Route: 042
     Dates: start: 20210615
  40. ENZALUTAMIDE [Suspect]
     Active Substance: ENZALUTAMIDE
     Indication: PROSTATE CANCER
     Route: 048
     Dates: start: 20190222, end: 20190426
  41. ENZALUTAMIDE [Suspect]
     Active Substance: ENZALUTAMIDE
     Route: 048
     Dates: start: 20190427
  42. ALOSENN [Concomitant]
     Indication: CONSTIPATION
     Dosage: 0.5 G, ONCE DAILY
     Route: 048
     Dates: start: 2007, end: 20180528
  43. SULTANOL [Concomitant]
     Active Substance: ALBUTEROL SULFATE
     Route: 065
  44. MAGMITT [Concomitant]
     Active Substance: MAGNESIUM OXIDE
     Indication: CONSTIPATION
     Route: 048
     Dates: start: 20170215
  45. MAGMITT [Concomitant]
     Active Substance: MAGNESIUM OXIDE
     Route: 048
     Dates: start: 2019
  46. L?CARBOCISTEINE [Concomitant]
     Active Substance: CARBOCYSTEINE
     Route: 048
     Dates: start: 2019
  47. MYSLEE [Concomitant]
     Active Substance: ZOLPIDEM TARTRATE
     Route: 048
     Dates: start: 20200313
  48. DEXTROMETHORPHAN HYDROBROMIDE. [Concomitant]
     Active Substance: DEXTROMETHORPHAN HYDROBROMIDE
     Route: 048
     Dates: start: 20191226
  49. FUROSEMIDE. [Concomitant]
     Active Substance: FUROSEMIDE
     Indication: CARDIAC FAILURE CHRONIC
     Route: 048
     Dates: start: 2007
  50. URIEF [Concomitant]
     Active Substance: SILODOSIN
     Indication: DYSURIA
     Route: 048
     Dates: start: 20170317
  51. WHITE PETROLATUM [Concomitant]
     Active Substance: PETROLATUM
     Indication: PRURITUS
     Dosage: ADEQUATE DOSE, AS NEEDED
     Route: 061
     Dates: start: 20210707
  52. MYSLEE [Concomitant]
     Active Substance: ZOLPIDEM TARTRATE
     Indication: INSOMNIA
     Dosage: UNK UNK, UNKNOWN FREQ.
     Route: 048
     Dates: start: 20191011, end: 20200123
  53. LECICARBON [Concomitant]
     Active Substance: SODIUM BICARBONATE\SODIUM PHOSPHATE, MONOBASIC
     Indication: CONSTIPATION
     Route: 065
     Dates: start: 20200716

REACTIONS (11)
  - Hepatic function abnormal [Not Recovered/Not Resolved]
  - Hepatic function abnormal [Recovering/Resolving]
  - Pleural effusion [Not Recovered/Not Resolved]
  - Decreased appetite [Not Recovered/Not Resolved]
  - Pneumothorax [Recovering/Resolving]
  - Pneumothorax [Recovered/Resolved]
  - Ascites [Not Recovered/Not Resolved]
  - Pneumonia aspiration [Fatal]
  - Non-small cell lung cancer [Not Recovered/Not Resolved]
  - Pruritus [Not Recovered/Not Resolved]
  - Weight decreased [Not Recovered/Not Resolved]

NARRATIVE: CASE EVENT DATE: 20190426
